FAERS Safety Report 22222569 (Version 2)
Quarter: 2025Q1

REPORT INFORMATION
  Report Type: Spontaneous
  Country: US (occurrence: US)
  Receive Date: 20230418
  Receipt Date: 20250108
  Transmission Date: 20250408
  Serious: No
  Sender: SANOFI AVENTIS
  Company Number: US-SA-SAC20230417000111

PATIENT
  Sex: Female

DRUGS (6)
  1. DUPIXENT [Suspect]
     Active Substance: DUPILUMAB
     Indication: Dermatitis atopic
     Dosage: 300 MG, QOW
     Route: 058
     Dates: start: 20210401
  2. ACITRETIN [Concomitant]
     Active Substance: ACITRETIN
  3. HALOBETASOL [Concomitant]
     Active Substance: HALOBETASOL
  4. PREDNISONE [Concomitant]
     Active Substance: PREDNISONE
  5. VTAMA [Concomitant]
     Active Substance: TAPINAROF
  6. PEPCID [Concomitant]
     Active Substance: FAMOTIDINE

REACTIONS (3)
  - Psoriasis [Unknown]
  - Sleep disorder [Unknown]
  - Eczema [Unknown]

NARRATIVE: CASE EVENT DATE: 20241201
